FAERS Safety Report 24446943 (Version 2)
Quarter: 2024Q4

REPORT INFORMATION
  Report Type: Spontaneous
  Country: US (occurrence: US)
  Receive Date: 20241016
  Receipt Date: 20241016
  Transmission Date: 20250115
  Serious: No
  Sender: NOVO NORDISK
  Company Number: US-NOVOPROD-1164085

PATIENT
  Sex: Male

DRUGS (2)
  1. SOGROYA [Suspect]
     Active Substance: SOMAPACITAN\SOMAPACITAN-BECO
     Indication: Growth hormone deficiency
     Dosage: 0.16MG/KG /WEEK
     Route: 058
     Dates: start: 202311
  2. SOGROYA [Suspect]
     Active Substance: SOMAPACITAN\SOMAPACITAN-BECO
     Indication: Growth hormone deficiency
     Dosage: 5 MG

REACTIONS (4)
  - Hypoaesthesia [Recovered/Resolved]
  - Dizziness [Unknown]
  - Nausea [Unknown]
  - Headache [Unknown]

NARRATIVE: CASE EVENT DATE: 20231101
